FAERS Safety Report 7124991-3 (Version None)
Quarter: 2010Q4

REPORT INFORMATION
  Report Type: 
  Country: None (occurrence: None)
  Receive Date: 20101129
  Receipt Date: 20101118
  Transmission Date: 20110411
  Serious: Yes (Other)
  Sender: FDA-Public Use
  Company Number: FR-JNJFOC-20101106808

PATIENT
  Age: 16 Year
  Sex: Female

DRUGS (3)
  1. REMICADE [Suspect]
     Indication: CROHN'S DISEASE
     Route: 042
  2. REMICADE [Suspect]
     Route: 042
  3. HYDROCORTISONE [Concomitant]
     Indication: CROHN'S DISEASE

REACTIONS (6)
  - COLECTOMY [None]
  - DRUG INEFFECTIVE [None]
  - INFUSION RELATED REACTION [None]
  - MALAISE [None]
  - RASH GENERALISED [None]
  - TACHYCARDIA [None]
